FAERS Safety Report 10356337 (Version 1)
Quarter: 2014Q3

REPORT INFORMATION
  Report Type: Spontaneous
  Country: US (occurrence: None)
  Receive Date: 20140730
  Receipt Date: 20140730
  Transmission Date: 20150326
  Serious: Yes (Other)
  Sender: FDA-Public Use
  Company Number: None

PATIENT
  Age: 84 Year
  Sex: Female
  Weight: 77 kg

DRUGS (1)
  1. AMOXICILLIN. [Suspect]
     Active Substance: AMOXICILLIN
     Indication: URINARY TRACT INFECTION
     Dosage: 7/15/2014-- 2/23/14 250MG/5ML 3 TIMES PER DAY ORAL
     Route: 048

REACTIONS (4)
  - Wheezing [None]
  - Lip swelling [None]
  - Gingival inflammation [None]
  - Gingival erythema [None]

NARRATIVE: CASE EVENT DATE: 20140723
